FAERS Safety Report 7293014 (Version 3)
Quarter: 2013Q4

REPORT INFORMATION
  Report Type: Spontaneous
  Country: US (occurrence: None)
  Receive Date: 20100203
  Receipt Date: 20131118
  Transmission Date: 20140711
  Serious: Yes (Other)
  Sender: FDA-Public Use
  Company Number: 2010S1000389

PATIENT
  Age: 60 Year
  Sex: Male

DRUGS (11)
  1. FLEET PHOSPHO-SODA ORAL SALINE LAXATIVE, GINGER-LEMON FLAVOR (ORAL SOLUTION) [Suspect]
     Indication: COLONOSCOPY
     Dosage: 90 ML;TOTAL;PO
     Route: 048
     Dates: start: 20050331, end: 20050331
  2. CELEBREX [Concomitant]
  3. PROTONIX [Concomitant]
  4. PLETAL [Concomitant]
  5. DILTIAZEM [Concomitant]
  6. QUININE [Concomitant]
  7. ALTACE [Concomitant]
  8. GLYBURIDE [Concomitant]
  9. METFORMIN HYDROCHLORIDE [Concomitant]
  10. ASPIRIN (ACETYLSALICYLIC ACID) [Concomitant]
  11. ALKA SELTZER (ACETYLSALICYLIC ACID) [Concomitant]

REACTIONS (3)
  - Renal failure acute [None]
  - Renal failure chronic [None]
  - Acute phosphate nephropathy [None]
